FAERS Safety Report 9023860 (Version 2)
Quarter: 2013Q3

REPORT INFORMATION
  Report Type: Report from Study
  Country: US (occurrence: US)
  Receive Date: 20130121
  Receipt Date: 20130829
  Transmission Date: 20140515
  Serious: Yes (Hospitalization)
  Sender: FDA-Public Use
  Company Number: US-ELI_LILLY_AND_COMPANY-US201211004536

PATIENT
  Age: 68 Year
  Sex: Female

DRUGS (6)
  1. TERIPARATIDE [Suspect]
     Indication: OSTEOPOROSIS
     Dosage: 20 UG, QD
     Dates: start: 20121105
  2. TERIPARATIDE [Suspect]
     Dosage: 20 UG, QD
     Dates: start: 20121105
  3. TERIPARATIDE [Suspect]
     Dosage: 20 UG, QD
     Dates: start: 20121105
  4. VITAMIN D [Concomitant]
  5. METOPROLOL [Concomitant]
  6. DIGOXIN [Concomitant]

REACTIONS (8)
  - Supraventricular tachycardia [Recovered/Resolved]
  - Fungal infection [Recovered/Resolved]
  - Urinary tract infection [Unknown]
  - Tenderness [Unknown]
  - Injection site urticaria [Unknown]
  - Injection site bruising [Recovering/Resolving]
  - Bunion [Unknown]
  - Foot deformity [Unknown]
